FAERS Safety Report 13569004 (Version 2)
Quarter: 2020Q4

REPORT INFORMATION
  Report Type: Spontaneous
  Country: CA (occurrence: CA)
  Receive Date: 20170522
  Receipt Date: 20201030
  Transmission Date: 20210113
  Serious: Yes (Other)
  Sender: FDA-Public Use
  Company Number: CA-009507513-1705CAN008033

PATIENT
  Age: 26 Year
  Sex: Female
  Weight: 68.03 kg

DRUGS (3)
  1. DULOXETINE HYDROCHLORIDE. [Suspect]
     Active Substance: DULOXETINE HYDROCHLORIDE
     Indication: DEPRESSION
     Dosage: 60 MG/ML, 2 EVERY ONE DAY (BID)
     Route: 048
     Dates: start: 20160913, end: 20161026
  2. NUVARING [Suspect]
     Active Substance: ETHINYL ESTRADIOL\ETONOGESTREL
     Dosage: VAGINAL RING
     Route: 067
  3. NAPROXEN. [Concomitant]
     Active Substance: NAPROXEN
     Dosage: UNK

REACTIONS (11)
  - Screaming [Recovering/Resolving]
  - Product substitution issue [Recovering/Resolving]
  - Condition aggravated [Recovering/Resolving]
  - Suicidal ideation [Recovering/Resolving]
  - Negativism [Recovering/Resolving]
  - Feelings of worthlessness [Recovering/Resolving]
  - Affect lability [Recovering/Resolving]
  - Crying [Recovering/Resolving]
  - Anger [Recovering/Resolving]
  - Negative thoughts [Recovering/Resolving]
  - Mood altered [Recovering/Resolving]
